FAERS Safety Report 24217921 (Version 2)
Quarter: 2024Q3

REPORT INFORMATION
  Report Type: Report from Study
  Country: EG (occurrence: EG)
  Receive Date: 20240816
  Receipt Date: 20240904
  Transmission Date: 20241016
  Serious: Yes (Other)
  Sender: SANDOZ
  Company Number: EG-SANDOZ-SDZ2024EG033166

PATIENT
  Sex: Male

DRUGS (1)
  1. HYRIMOZ [Suspect]
     Active Substance: ADALIMUMAB-ADAZ
     Indication: Rheumatoid arthritis
     Dosage: 40 MG EVERY OTHER WEEK
     Route: 058
     Dates: start: 20240303, end: 20240331

REACTIONS (3)
  - Large intestine benign neoplasm [Unknown]
  - Tumour haemorrhage [Recovered/Resolved]
  - Therapeutic response unexpected [Recovering/Resolving]
